FAERS Safety Report 7815349-X (Version None)
Quarter: 2011Q4

REPORT INFORMATION
  Report Type: 
  Country: None (occurrence: None)
  Receive Date: 20111014
  Receipt Date: 20111005
  Transmission Date: 20120403
  Serious: Yes (Hospitalization, Other)
  Sender: FDA-Public Use
  Company Number: US-MERCK-1102USA01704

PATIENT
  Age: 69 Year
  Sex: Female

DRUGS (4)
  1. ONE-A-DAY ESSENTIAL VITAMINS [Concomitant]
     Route: 065
     Dates: start: 19950101
  2. FOSAMAX [Suspect]
     Indication: OSTEOPOROSIS PROPHYLAXIS
     Route: 048
     Dates: start: 19950101, end: 20080701
  3. FOSAMAX [Suspect]
     Indication: OSTEOPOROSIS
     Route: 048
     Dates: start: 19950101, end: 20080701
  4. CALCIUM (UNSPECIFIED) [Concomitant]
     Route: 065
     Dates: start: 19950101

REACTIONS (10)
  - CALCIUM DEFICIENCY [None]
  - HAND FRACTURE [None]
  - PAIN IN EXTREMITY [None]
  - GASTROINTESTINAL DISORDER [None]
  - HYPERTENSION [None]
  - FEMUR FRACTURE [None]
  - BREAST CANCER [None]
  - BRONCHITIS [None]
  - FALL [None]
  - OSTEOPOROSIS [None]
